FAERS Safety Report 17529713 (Version 1)
Quarter: 2020Q1

REPORT INFORMATION
  Report Type: Spontaneous
  Country: GB (occurrence: GB)
  Receive Date: 20200311
  Receipt Date: 20200311
  Transmission Date: 20200409
  Serious: Yes (Death, Life-Threatening, Hospitalization, Other)
  Sender: FDA-Public Use
  Company Number: GB-MYLANLABS-2020M1025822

PATIENT
  Age: 66 Year
  Sex: Male

DRUGS (8)
  1. COLCHICINE. [Interacting]
     Active Substance: COLCHICINE
     Indication: GOUT
     Dosage: 1.2 MG, PER DAY
  2. METICORTEN [Interacting]
     Active Substance: PREDNISONE
     Indication: POSTOPERATIVE CARE
     Dosage: 7.5 MILLIGRAM, PER DAY
     Route: 048
  3. SIMVASTATIN. [Interacting]
     Active Substance: SIMVASTATIN
     Indication: MYOCARDIAL ISCHAEMIA
     Dosage: 30 MG, QD
     Route: 048
  4. SIMVASTATIN. [Interacting]
     Active Substance: SIMVASTATIN
     Indication: HYPERLIPIDAEMIA
     Dosage: 60 MILLIGRAM, QD
     Route: 048
  5. MYCOPHENOLATE SODIUM [Suspect]
     Active Substance: MYCOPHENOLATE SODIUM
     Indication: POSTOPERATIVE CARE
     Dosage: UNK
  6. INSULIN [Concomitant]
     Active Substance: INSULIN NOS
     Indication: DIABETES MELLITUS
     Dosage: UNK
  7. CICLOSPORIN [Interacting]
     Active Substance: CYCLOSPORINE
     Indication: POSTOPERATIVE CARE
     Dosage: 150 MG, PER DAY
  8. MYCOPHENOLATE SODIUM [Suspect]
     Active Substance: MYCOPHENOLATE SODIUM
     Indication: GOUT
     Dosage: 500 MG, PER DAY

REACTIONS (4)
  - Pneumonia [Fatal]
  - Myopathy toxic [Fatal]
  - Rhabdomyolysis [Fatal]
  - Drug interaction [Fatal]
